FAERS Safety Report 22160932 (Version 1)
Quarter: 2023Q1

REPORT INFORMATION
  Report Type: Spontaneous
  Country: US (occurrence: None)
  Receive Date: 20230330
  Receipt Date: 20230330
  Transmission Date: 20230418
  Serious: Yes (Hospitalization)
  Sender: FDA-Public Use
  Company Number: None

PATIENT
  Sex: Male

DRUGS (4)
  1. NIVESTYM [Suspect]
     Active Substance: FILGRASTIM-AAFI
     Indication: Neutropenia
     Dosage: OTHER STRENGTH : 300/0.5 UG/MG;?FREQUENCY : EVERY OTHER WEEK;?
     Route: 058
     Dates: start: 202303
  2. SORAFENIB [Suspect]
     Active Substance: SORAFENIB
     Dosage: OTHER FREQUENCY : AM MON + THURS;?
     Route: 048
     Dates: start: 202303
  3. SORAFENIB [Suspect]
     Active Substance: SORAFENIB
     Dosage: OTHER FREQUENCY : PM MON + THURS;?
     Route: 048
  4. SORAFENIB [Suspect]
     Active Substance: SORAFENIB
     Dosage: OTHER FREQUENCY : 2X TU, W,F,S, SUN;?
     Route: 048
     Dates: start: 202303

REACTIONS (1)
  - Ammonia increased [None]
